FAERS Safety Report 7650651-6 (Version None)
Quarter: 2011Q3

REPORT INFORMATION
  Report Type: 
  Country: None (occurrence: None)
  Receive Date: 20110802
  Receipt Date: 20110617
  Transmission Date: 20111222
  Serious: No
  Sender: FDA-Public Use
  Company Number: US-BAYER-2011-053504

PATIENT
  Age: 80 Year
  Sex: Female
  Weight: 61 kg

DRUGS (8)
  1. ALEVE (CAPLET) [Suspect]
     Indication: SYNOVIAL CYST
     Dosage: 440 MG, BID, BOTTLE COUNT 100S
     Route: 048
     Dates: start: 20110615
  2. PLAVIX [Concomitant]
  3. NITROGLYCERIN [Concomitant]
  4. LORATADINE W/PSEUDOEPHEDRINE [Concomitant]
  5. ATENOLOL [Concomitant]
  6. FOSAMAX [Concomitant]
  7. ALLOPURINOL [Concomitant]
  8. AZOR [Concomitant]

REACTIONS (1)
  - RASH GENERALISED [None]
